FAERS Safety Report 16230495 (Version 1)
Quarter: 2019Q2

REPORT INFORMATION
  Report Type: Spontaneous
  Country: FR (occurrence: FR)
  Receive Date: 20190423
  Receipt Date: 20190423
  Transmission Date: 20190711
  Serious: Yes (Life-Threatening)
  Sender: FDA-Public Use
  Company Number: FR-ALLERGAN-1917196US

PATIENT
  Sex: Female
  Weight: 57 kg

DRUGS (6)
  1. LAMOTRIGINE. [Suspect]
     Active Substance: LAMOTRIGINE
     Indication: TOXICITY TO VARIOUS AGENTS
     Dosage: UNK, UNKNOWN
     Route: 048
     Dates: start: 20190407
  2. MIRTAZAPINE. [Suspect]
     Active Substance: MIRTAZAPINE
     Indication: TOXICITY TO VARIOUS AGENTS
     Dosage: UNK, UNKNOWN
     Route: 048
     Dates: start: 20190407
  3. COVERAM [Suspect]
     Active Substance: AMLODIPINE\PERINDOPRIL
     Indication: TOXICITY TO VARIOUS AGENTS
     Dosage: UNK, UNKNOWN
     Route: 048
     Dates: start: 20190407
  4. LEVOTHYROX [Suspect]
     Active Substance: LEVOTHYROXINE
     Indication: TOXICITY TO VARIOUS AGENTS
     Dosage: UNK, UNKNOWN
     Route: 048
     Dates: start: 20190407
  5. ESCITALOPRAM OXALATE - BP [Suspect]
     Active Substance: ESCITALOPRAM OXALATE
     Indication: TOXICITY TO VARIOUS AGENTS
     Dosage: UNK, UNKNOWN
     Route: 048
     Dates: start: 20190407
  6. RACECADOTRIL BGR [Suspect]
     Active Substance: RACECADOTRIL
     Indication: TOXICITY TO VARIOUS AGENTS
     Dosage: UNK, UNKNOWN
     Route: 048
     Dates: start: 20190407

REACTIONS (4)
  - Toxicity to various agents [Recovered/Resolved]
  - Shock [Recovered/Resolved]
  - Acute kidney injury [Recovered/Resolved]
  - Somnolence [Recovered/Resolved]

NARRATIVE: CASE EVENT DATE: 20190407
